FAERS Safety Report 6304649-0 (Version None)
Quarter: 2009Q3

REPORT INFORMATION
  Report Type: 
  Country: None (occurrence: None)
  Receive Date: 20090811
  Receipt Date: 20090804
  Transmission Date: 20100115
  Serious: No
  Sender: FDA-Public Use
  Company Number: US-JNJFOC-20090801919

PATIENT
  Sex: Female
  Weight: 70.31 kg

DRUGS (4)
  1. DURAGESIC-100 [Suspect]
     Indication: BACK PAIN
     Route: 062
  2. BENTYL [Concomitant]
     Indication: IRRITABLE BOWEL SYNDROME
     Route: 048
  3. WELLBUTRIN [Concomitant]
     Indication: DEPRESSION
     Route: 048
  4. NORCO [Concomitant]
     Indication: BREAKTHROUGH PAIN
     Dosage: 10/325 MG AS NEEDED
     Route: 048

REACTIONS (6)
  - ANXIETY [None]
  - BLOOD CHOLESTEROL INCREASED [None]
  - DEVICE ADHESION ISSUE [None]
  - FIBROMYALGIA [None]
  - MENOPAUSAL SYMPTOMS [None]
  - WRONG TECHNIQUE IN DRUG USAGE PROCESS [None]
